FAERS Safety Report 8463739-7 (Version None)
Quarter: 2012Q2

REPORT INFORMATION
  Report Type: 
  Country: None (occurrence: None)
  Receive Date: 20120625
  Receipt Date: 20120620
  Transmission Date: 20120825
  Serious: Yes (Other)
  Sender: FDA-Public Use
  Company Number: PHHY2012US053293

PATIENT
  Age: 49 Year
  Sex: Female

DRUGS (3)
  1. BUFFERIN [Suspect]
     Indication: HEADACHE
     Route: 048
  2. BUFFERIN [Suspect]
     Indication: BACK PAIN
  3. BUFFERIN [Suspect]
     Indication: NECK PAIN

REACTIONS (3)
  - NECK PAIN [None]
  - BACK PAIN [None]
  - ROAD TRAFFIC ACCIDENT [None]
